FAERS Safety Report 9645322 (Version 1)
Quarter: 2013Q4

REPORT INFORMATION
  Report Type: Spontaneous
  Country: US (occurrence: None)
  Receive Date: 20131023
  Receipt Date: 20131023
  Transmission Date: 20140711
  Serious: Yes (Other)
  Sender: FDA-Public Use
  Company Number: None

PATIENT
  Age: 53 Year
  Sex: Female
  Weight: 49.9 kg

DRUGS (4)
  1. ALVESCO [Suspect]
     Indication: ASTHMA
  2. ALVESCO INHALATION AEROSOL [Concomitant]
  3. DYMISTA [Concomitant]
  4. SINGULAR [Concomitant]

REACTIONS (2)
  - Device malfunction [None]
  - Incorrect dose administered by device [None]
